FAERS Safety Report 7815618-3 (Version None)
Quarter: 2011Q4

REPORT INFORMATION
  Report Type: 
  Country: None (occurrence: None)
  Receive Date: 20111014
  Receipt Date: 20111011
  Transmission Date: 20120403
  Serious: Yes (Other)
  Sender: FDA-Public Use
  Company Number: BR-ABBOTT-11P-020-0863060-00

PATIENT
  Sex: Male

DRUGS (8)
  1. BETALOR [Concomitant]
     Indication: BLOOD PRESSURE
     Route: 048
  2. CITALOPRAM [Concomitant]
     Indication: NERVOUSNESS
     Route: 048
  3. HUMIRA [Suspect]
     Indication: ANKYLOSING SPONDYLITIS
     Route: 058
     Dates: start: 20090109
  4. BROMAZEPAM [Concomitant]
     Indication: NERVOUSNESS
  5. ALLOPURINOL [Concomitant]
     Indication: GOUT
     Route: 048
  6. FUROSEMIDE [Concomitant]
     Indication: RENAL DISORDER
     Route: 048
  7. BROMAZEPAM [Concomitant]
     Indication: INSOMNIA
     Dosage: 1 OR 2 TABLETS PER DAY
     Route: 048
  8. FAMOTIDINE + PREDNISONE + ANHYDRIDE (COMBINED FORMULA) [Concomitant]
     Indication: ARTHRALGIA
     Dosage: 40 MG + 6 MG, TWICE DAILY, AS NEEDED
     Route: 048

REACTIONS (6)
  - CEREBROVASCULAR ACCIDENT [None]
  - HAEMORRHOIDS [None]
  - INFLAMMATION [None]
  - HAEMORRHOIDAL HAEMORRHAGE [None]
  - THROMBOSIS [None]
  - RASH [None]
